FAERS Safety Report 5189340-9 (Version None)
Quarter: 2006Q4

REPORT INFORMATION
  Report Type: 
  Country: None (occurrence: None)
  Receive Date: 20061215
  Receipt Date: 20061204
  Transmission Date: 20070319
  Serious: Yes (Hospitalization, Other)
  Sender: FDA-Public Use
  Company Number: 15250

PATIENT
  Age: 69 Year
  Sex: Male

DRUGS (1)
  1. METHOTREXATE [Suspect]
     Indication: RHEUMATOID ARTHRITIS
     Dosage: 15 MG WEEKLY PO
     Route: 048

REACTIONS (11)
  - BACTERIAL INFECTION [None]
  - CUTANEOUS TUBERCULOSIS [None]
  - DEVICE RELATED INFECTION [None]
  - DISEASE RECURRENCE [None]
  - FEMORAL ARTERY ANEURYSM [None]
  - INFLAMMATION [None]
  - INGUINAL MASS [None]
  - PLEURAL CALCIFICATION [None]
  - PLEURAL FIBROSIS [None]
  - TUBERCULOSIS [None]
  - VASCULAR PSEUDOANEURYSM RUPTURED [None]
